FAERS Safety Report 4405670-X (Version None)
Quarter: 2004Q3

REPORT INFORMATION
  Report Type: 
  Country: None (occurrence: None)
  Receive Date: 20040723
  Receipt Date: 20031110
  Transmission Date: 20050211
  Serious: No
  Sender: FDA-Public Use
  Company Number: US-GLAXOSMITHKLINE-A0439022A

PATIENT
  Age: 71 Year
  Sex: Female

DRUGS (6)
  1. AVANDIA [Suspect]
     Dosage: 8MG PER DAY
     Route: 048
     Dates: start: 20010801, end: 20030915
  2. ZESTRIL [Concomitant]
  3. ZOCOR [Concomitant]
  4. ALLEGRA [Concomitant]
  5. GLYBURIDE [Concomitant]
  6. ESTRACE [Concomitant]

REACTIONS (7)
  - ABDOMINAL DISTENSION [None]
  - ASTHENIA [None]
  - CELLULITIS [None]
  - DYSPNOEA [None]
  - FATIGUE [None]
  - HYPOGLYCAEMIA [None]
  - WEIGHT INCREASED [None]
